FAERS Safety Report 7673568-X (Version None)
Quarter: 2011Q3

REPORT INFORMATION
  Report Type: 
  Country: None (occurrence: None)
  Receive Date: 20110804
  Receipt Date: 20110722
  Transmission Date: 20111222
  Serious: Yes (Disabling)
  Sender: FDA-Public Use
  Company Number: FR-1185476

PATIENT
  Age: 44 Year
  Sex: Female

DRUGS (1)
  1. AZOPT [Suspect]
     Indication: GLAUCOMA
     Dosage: (1 GTT BID OD OPHTHALMIC)
     Route: 047
     Dates: start: 20100520, end: 20110315

REACTIONS (1)
  - DEAFNESS [None]
